FAERS Safety Report 9083757 (Version 1)
Quarter: 2013Q1

REPORT INFORMATION
  Report Type: Report from Study
  Country: US (occurrence: US)
  Receive Date: 20130131
  Receipt Date: 20130131
  Transmission Date: 20140127
  Serious: No
  Sender: FDA-Public Use
  Company Number: US-ABBOTT-12P-163-1011038-00

PATIENT
  Age: 31 Year
  Sex: Male

DRUGS (6)
  1. HUMIRA [Suspect]
     Indication: PSORIATIC ARTHROPATHY
     Route: 058
     Dates: start: 20121102
  2. UNKNOWN STEROID CREAM [Concomitant]
     Indication: PRODUCT USED FOR UNKNOWN INDICATION
     Dosage: NONE PRESCRIPTION
  3. ZYRTEC [Concomitant]
     Indication: HYPERSENSITIVITY
  4. BENADRYL [Concomitant]
     Indication: HYPERSENSITIVITY
  5. MUCINEX [Concomitant]
     Indication: HYPERSENSITIVITY
  6. MULTIPLE VITAMIN [Concomitant]
     Indication: PRODUCT USED FOR UNKNOWN INDICATION

REACTIONS (1)
  - Injection site pain [Recovered/Resolved]
